FAERS Safety Report 4425003-2 (Version None)
Quarter: 2004Q3

REPORT INFORMATION
  Report Type: 
  Country: None (occurrence: None)
  Receive Date: 20040811
  Receipt Date: 20040811
  Transmission Date: 20050211
  Serious: Yes (Hospitalization)
  Sender: FDA-Public Use
  Company Number: None

PATIENT
  Age: 78 Year
  Sex: Female
  Weight: 81.2 kg

DRUGS (10)
  1. COUMADIN [Suspect]
     Indication: PHLEBOTHROMBOSIS
     Dosage: 1/2 TAB EVERY DAY BUCCAL
     Route: 002
     Dates: start: 20040803, end: 20040805
  2. COUMADIN [Suspect]
     Indication: THROMBOSIS PROPHYLAXIS
     Dosage: 1/2 TAB EVERY DAY BUCCAL
     Route: 002
     Dates: start: 20040803, end: 20040805
  3. NASAL OXYGEN [Concomitant]
  4. LASIX [Concomitant]
  5. TOPROL-XL [Concomitant]
  6. KCL TAB [Concomitant]
  7. AMBIEN [Concomitant]
  8. DIGOXIN [Concomitant]
  9. ACCUPRIL [Concomitant]
  10. AUGMENTIN XR [Concomitant]

REACTIONS (1)
  - INTERNATIONAL NORMALISED RATIO INCREASED [None]
